FAERS Safety Report 9404395 (Version 1)
Quarter: 2013Q3

REPORT INFORMATION
  Report Type: Spontaneous
  Country: US (occurrence: US)
  Receive Date: 20130717
  Receipt Date: 20130717
  Transmission Date: 20140515
  Serious: No
  Sender: FDA-Public Use
  Company Number: US-009507513-1306USA014075

PATIENT
  Age: 62 Year
  Sex: Male
  Weight: 112.93 kg

DRUGS (11)
  1. VICTRELIS [Suspect]
     Dosage: 800 MG, Q8H WITH FOOD
     Route: 048
  2. PEGASYS [Suspect]
     Dosage: 180 MICROGRAM/M
     Route: 058
  3. CENTRUM (MINERALS (UNSPECIFIED) (+) VITAMINS (UNSPECIFIED)) [Concomitant]
     Route: 048
  4. PAXIL [Concomitant]
     Dosage: UNK
     Route: 048
  5. LASIX (FUROSEMIDE) [Concomitant]
     Dosage: UNK
     Route: 048
  6. NOVOLOG [Concomitant]
     Dosage: 100/ML
     Route: 058
  7. NEXIUM [Concomitant]
     Dosage: UNK
     Route: 048
  8. GLIPIZIDE [Concomitant]
     Dosage: UNK
     Route: 048
  9. MICARDIS [Concomitant]
  10. VITAMIN D (UNSPECIFIED) [Concomitant]
     Dosage: UNK
     Route: 048
  11. OMEGA-3 [Concomitant]
     Dosage: UNK
     Route: 048

REACTIONS (2)
  - Fluid retention [Unknown]
  - Hepatic pain [Unknown]
